FAERS Safety Report 7438353-2 (Version None)
Quarter: 2011Q2

REPORT INFORMATION
  Report Type: 
  Country: None (occurrence: None)
  Receive Date: 20110426
  Receipt Date: 20110415
  Transmission Date: 20111010
  Serious: Yes (Hospitalization, Other)
  Sender: FDA-Public Use
  Company Number: US-BAYER-2010-004467

PATIENT
  Age: 28 Year
  Weight: 106.12 kg

DRUGS (1)
  1. MIRENA [Suspect]
     Indication: CONTRACEPTION
     Dosage: UNK
     Route: 015
     Dates: start: 20090701, end: 20101201

REACTIONS (2)
  - CEREBROVASCULAR ACCIDENT [None]
  - ALOPECIA [None]
